FAERS Safety Report 18062262 (Version 1)
Quarter: 2020Q3

REPORT INFORMATION
  Report Type: Spontaneous
  Country: JP (occurrence: JP)
  Receive Date: 20200723
  Receipt Date: 20200723
  Transmission Date: 20201103
  Serious: Yes (Death)
  Sender: FDA-Public Use
  Company Number: JP-CELGENEUS-JPN-20200705571

PATIENT
  Age: 75 Year
  Sex: Male

DRUGS (16)
  1. KEYTRUDA [Suspect]
     Active Substance: PEMBROLIZUMAB
     Indication: METASTASES TO BONE
  2. LIMAPROST ALFADEX [Concomitant]
     Active Substance: LIMAPROST
     Indication: PRODUCT USED FOR UNKNOWN INDICATION
     Route: 048
  3. KEYTRUDA [Suspect]
     Active Substance: PEMBROLIZUMAB
     Indication: LUNG SQUAMOUS CELL CARCINOMA METASTATIC
     Dosage: 200 MILLIGRAM
     Route: 041
     Dates: end: 20200212
  4. CARBOPLATIN. [Concomitant]
     Active Substance: CARBOPLATIN
     Indication: LUNG SQUAMOUS CELL CARCINOMA METASTATIC
     Dosage: AUC=6
     Route: 041
     Dates: start: 20200128, end: 20200128
  5. ABRAXANE [Suspect]
     Active Substance: PACLITAXEL
     Indication: METASTASES TO BONE
  6. CARBOPLATIN. [Concomitant]
     Active Substance: CARBOPLATIN
     Indication: METASTASES TO BONE
     Route: 041
     Dates: start: 2020, end: 20200212
  7. MORPHINE HYDROCHLORIDE HYDRATE [Concomitant]
     Active Substance: MORPHINE HYDROCHLORIDE
     Indication: DYSPNOEA
     Route: 065
     Dates: start: 20200228
  8. REBAMIPIDE [Concomitant]
     Active Substance: REBAMIPIDE
     Indication: PRODUCT USED FOR UNKNOWN INDICATION
     Route: 048
  9. ABRAXANE [Suspect]
     Active Substance: PACLITAXEL
     Indication: LUNG SQUAMOUS CELL CARCINOMA METASTATIC
     Dosage: 100 MILLIGRAM/SQ. METER
     Route: 041
     Dates: start: 20200128, end: 20200212
  10. MAGMITT [Concomitant]
     Active Substance: MAGNESIUM OXIDE
     Indication: PRODUCT USED FOR UNKNOWN INDICATION
     Route: 048
  11. METHYLCOBAL [Concomitant]
     Active Substance: METHYLCOBALAMIN
     Indication: PRODUCT USED FOR UNKNOWN INDICATION
     Route: 048
  12. LOXOPROFEN [Concomitant]
     Active Substance: LOXOPROFEN
     Indication: PRODUCT USED FOR UNKNOWN INDICATION
     Route: 048
  13. CALONAL [Concomitant]
     Active Substance: ACETAMINOPHEN
     Indication: PRODUCT USED FOR UNKNOWN INDICATION
     Route: 048
  14. FAMOTIDINE. [Concomitant]
     Active Substance: FAMOTIDINE
     Indication: PRODUCT USED FOR UNKNOWN INDICATION
     Route: 051
  15. OXYCODONE [Concomitant]
     Active Substance: OXYCODONE
     Indication: PRODUCT USED FOR UNKNOWN INDICATION
     Route: 048
  16. ADRENAL HORMONE PREPARATIONS [Concomitant]
     Active Substance: UNSPECIFIED INGREDIENT
     Indication: LUNG DISORDER
     Route: 041
     Dates: start: 20200210

REACTIONS (2)
  - Pneumonia [Fatal]
  - Lung disorder [Fatal]

NARRATIVE: CASE EVENT DATE: 20200210
